FAERS Safety Report 9375630 (Version 1)
Quarter: 2013Q2

REPORT INFORMATION
  Report Type: Spontaneous
  Country: US (occurrence: US)
  Receive Date: 20130628
  Receipt Date: 20130628
  Transmission Date: 20140414
  Serious: Yes (Other)
  Sender: FDA-Public Use
  Company Number: US-GILEAD-2013-0075846

PATIENT
  Sex: Female

DRUGS (4)
  1. LETAIRIS [Suspect]
     Indication: PRODUCT USED FOR UNKNOWN INDICATION
     Dosage: 5 MG, QD
     Dates: start: 20130313, end: 20130523
  2. LETAIRIS [Suspect]
     Dosage: 5 MG, QD
     Dates: start: 20130318
  3. REMODULIN [Concomitant]
  4. ADCIRCA [Concomitant]

REACTIONS (4)
  - Hypotension [Unknown]
  - Infusion site mass [Unknown]
  - Infusion site pain [Unknown]
  - Unevaluable event [Unknown]
